FAERS Safety Report 8929292 (Version 3)
Quarter: 2013Q2

REPORT INFORMATION
  Report Type: Spontaneous
  Country: GB (occurrence: None)
  Receive Date: 20121119
  Receipt Date: 20130530
  Transmission Date: 20140414
  Serious: Yes (Hospitalization, Other)
  Sender: FDA-Public Use
  Company Number: AUR-APL-2012-04814

PATIENT
  Age: 34 Year
  Sex: Male

DRUGS (5)
  1. AMLODIPINE [Suspect]
     Indication: HYPERTENSION
  2. SIMPONI [Suspect]
     Indication: PRODUCT USED FOR UNKNOWN INDICATION
     Route: 058
     Dates: start: 20120912
  3. LANSOPRAZOLE (LANSOPRAZOLE) [Concomitant]
  4. NYSTATIN (NYSTATIN) [Concomitant]
  5. PERINDOPRIL (PERINDOPRIL) [Concomitant]

REACTIONS (5)
  - Pharyngitis [None]
  - Oral candidiasis [None]
  - Haematemesis [None]
  - Blood pressure increased [None]
  - Fall [None]
